FAERS Safety Report 8290339-4 (Version None)
Quarter: 2012Q2

REPORT INFORMATION
  Report Type: 
  Country: None (occurrence: None)
  Receive Date: 20120417
  Receipt Date: 20120406
  Transmission Date: 20120825
  Serious: Yes (Other)
  Sender: FDA-Public Use
  Company Number: US-BAYER-2012-034276

PATIENT
  Age: 73 Year
  Sex: Male
  Weight: 91 kg

DRUGS (1)
  1. ASPIRIN [Suspect]
     Indication: MYOCARDIAL INFARCTION
     Dosage: 1 DF, ONCE
     Route: 048
     Dates: start: 20120316, end: 20120316

REACTIONS (1)
  - THERAPEUTIC RESPONSE UNEXPECTED [None]
